FAERS Safety Report 10517272 (Version 3)
Quarter: 2014Q4

REPORT INFORMATION
  Report Type: Spontaneous
  Country: JP (occurrence: JP)
  Receive Date: 20141014
  Receipt Date: 20141201
  Transmission Date: 20150528
  Serious: Yes (Death, Hospitalization)
  Sender: FDA-Public Use
  Company Number: JP-OTSUKA-JP-2014-16003

PATIENT

DRUGS (2)
  1. PLETAAL [Suspect]
     Active Substance: CILOSTAZOL
     Dosage: UNK, REDUCED TO HALF
     Route: 048
  2. PLETAAL [Suspect]
     Active Substance: CILOSTAZOL
     Indication: CEREBRAL INFARCTION
     Dosage: UNK
     Route: 048

REACTIONS (2)
  - Tachycardia [Recovered/Resolved]
  - Pneumonia [Fatal]

NARRATIVE: CASE EVENT DATE: 201409
